FAERS Safety Report 7020379-4 (Version None)
Quarter: 2010Q3

REPORT INFORMATION
  Report Type: 
  Country: None (occurrence: None)
  Receive Date: 20100929
  Receipt Date: 20100924
  Transmission Date: 20110219
  Serious: Yes (Hospitalization)
  Sender: FDA-Public Use
  Company Number: GBWYE114204NOV05

PATIENT
  Age: 49 Year
  Sex: Male

DRUGS (1)
  1. IBUPROFEN [Suspect]
     Indication: MIGRAINE
     Dosage: 400 MG EVERY 1 PRN
     Route: 048
     Dates: start: 20050901, end: 20051001

REACTIONS (4)
  - ANAEMIA [None]
  - DUODENITIS [None]
  - GASTRIC ULCER [None]
  - UPPER GASTROINTESTINAL HAEMORRHAGE [None]
